FAERS Safety Report 6465934-5 (Version None)
Quarter: 2009Q4

REPORT INFORMATION
  Report Type: 
  Country: None (occurrence: None)
  Receive Date: 20091202
  Receipt Date: 20091124
  Transmission Date: 20100525
  Serious: Yes (Hospitalization)
  Sender: FDA-Public Use
  Company Number: US-BIOGENIDEC-2009BI031829

PATIENT
  Age: 56 Year
  Sex: Female
  Weight: 136 kg

DRUGS (4)
  1. AVONEX [Suspect]
     Indication: MULTIPLE SCLEROSIS
     Route: 030
     Dates: start: 20020325, end: 20030101
  2. AVONEX [Suspect]
     Route: 030
     Dates: start: 20030101
  3. SINGULAIR [Concomitant]
  4. FEXOFENADINE [Concomitant]

REACTIONS (11)
  - ASTHMA [None]
  - FALL [None]
  - HEART RATE IRREGULAR [None]
  - HUMERUS FRACTURE [None]
  - HYPOAESTHESIA [None]
  - JOINT DISLOCATION [None]
  - LIGAMENT RUPTURE [None]
  - MULTIPLE SCLEROSIS [None]
  - PARAESTHESIA [None]
  - ROTATOR CUFF SYNDROME [None]
  - TENOSYNOVITIS [None]
